FAERS Safety Report 19968433 (Version 1)
Quarter: 2021Q4

REPORT INFORMATION
  Report Type: Spontaneous
  Country: US (occurrence: US)
  Receive Date: 20211018
  Receipt Date: 20211018
  Transmission Date: 20220303
  Serious: Yes (Hospitalization)
  Sender: FDA-Public Use
  Company Number: None

PATIENT
  Age: 47 Year
  Sex: Female
  Weight: 74.84 kg

DRUGS (7)
  1. REGEN-COV [Suspect]
     Active Substance: CASIRIVIMAB\IMDEVIMAB
  2. ZYRTEC [Concomitant]
     Active Substance: CETIRIZINE HYDROCHLORIDE
  3. FLONASE [Concomitant]
     Active Substance: FLUTICASONE PROPIONATE
  4. CALCIUM [Concomitant]
     Active Substance: CALCIUM
  5. MAGNESIUM [Concomitant]
     Active Substance: MAGNESIUM
  6. ZINC [Concomitant]
     Active Substance: ZINC
  7. VITAMIN D [Concomitant]
     Active Substance: VITAMIN D NOS

REACTIONS (9)
  - Pyrexia [None]
  - Chills [None]
  - Feeling abnormal [None]
  - Confusional state [None]
  - Feeling of body temperature change [None]
  - Nausea [None]
  - Dizziness [None]
  - Disturbance in attention [None]
  - Drug hypersensitivity [None]

NARRATIVE: CASE EVENT DATE: 20211006
